FAERS Safety Report 19025197 (Version 3)
Quarter: 2022Q2

REPORT INFORMATION
  Report Type: Report from Study
  Country: US (occurrence: US)
  Receive Date: 20210318
  Receipt Date: 20220614
  Transmission Date: 20220720
  Serious: No
  Sender: FDA-Public Use
  Company Number: NVSC2021US059919

PATIENT
  Age: 38 Year
  Sex: Female

DRUGS (1)
  1. GILENYA [Suspect]
     Active Substance: FINGOLIMOD HYDROCHLORIDE
     Indication: Relapsing-remitting multiple sclerosis
     Dosage: 0.5 MG
     Route: 048
     Dates: start: 20210311

REACTIONS (3)
  - Dark circles under eyes [Unknown]
  - Emotional distress [Unknown]
  - Palpitations [Recovered/Resolved]

NARRATIVE: CASE EVENT DATE: 20210311
